FAERS Safety Report 7656047-5 (Version None)
Quarter: 2011Q3

REPORT INFORMATION
  Report Type: 
  Country: None (occurrence: None)
  Receive Date: 20110804
  Receipt Date: 20110720
  Transmission Date: 20111222
  Serious: Yes (Hospitalization, Other)
  Sender: FDA-Public Use
  Company Number: US-ELI_LILLY_AND_COMPANY-US201107007240

PATIENT
  Sex: Female

DRUGS (4)
  1. ANALGESICS [Concomitant]
     Indication: PAIN
     Dosage: UNK
  2. FORTEO [Suspect]
     Indication: OSTEOPOROSIS
     Dosage: 20 UG, QD
     Route: 065
     Dates: start: 20100101
  3. NEXIUM [Concomitant]
  4. CELEBREX [Concomitant]

REACTIONS (5)
  - PAIN [None]
  - MEDICAL DEVICE IMPLANTATION [None]
  - BONE DENSITY DECREASED [None]
  - ARTHROPATHY [None]
  - DRUG DOSE OMISSION [None]
